FAERS Safety Report 13590113 (Version 2)
Quarter: 2017Q2

REPORT INFORMATION
  Report Type: Spontaneous
  Country: SE (occurrence: SE)
  Receive Date: 20170530
  Receipt Date: 20170607
  Transmission Date: 20170830
  Serious: Yes (Death)
  Sender: FDA-Public Use
  Company Number: SE-CHIESI USA INC-SE-CHSI-17-00038

PATIENT
  Age: 75 Year
  Sex: Male
  Weight: 60 kg

DRUGS (6)
  1. KENGREXAL [Suspect]
     Active Substance: CANGRELOR
     Route: 041
  2. KENGREXAL [Suspect]
     Active Substance: CANGRELOR
     Indication: PERCUTANEOUS CORONARY INTERVENTION
     Route: 040
  3. HEPARIN [Concomitant]
     Active Substance: HEPARIN SODIUM
     Route: 065
  4. DALTEPARIN [Concomitant]
     Active Substance: DALTEPARIN
     Indication: PRODUCT USED FOR UNKNOWN INDICATION
     Route: 065
  5. ACETYLSALICYLIC ACID [Concomitant]
     Active Substance: ASPIRIN
     Indication: CARDIAC ARREST
     Route: 065
  6. HEPARIN [Concomitant]
     Active Substance: HEPARIN SODIUM
     Indication: CARDIAC ARREST
     Route: 065

REACTIONS (1)
  - Thrombosis [Fatal]
